FAERS Safety Report 21954875 (Version 1)
Quarter: 2023Q1

REPORT INFORMATION
  Report Type: Spontaneous
  Country: IQ (occurrence: IQ)
  Receive Date: 20230205
  Receipt Date: 20230205
  Transmission Date: 20230418
  Serious: Yes (Death, Other)
  Sender: FDA-Public Use
  Company Number: IQ-009507513-2211IRQ007835

PATIENT
  Sex: Female

DRUGS (1)
  1. KEYTRUDA [Suspect]
     Active Substance: PEMBROLIZUMAB
     Indication: Non-small cell lung cancer
     Dosage: Q3W FOR 5 CYCLES
     Dates: end: 20221212

REACTIONS (2)
  - Pulmonary embolism [Fatal]
  - Anaemia [Recovered/Resolved with Sequelae]
